FAERS Safety Report 24970469 (Version 1)
Quarter: 2025Q1

REPORT INFORMATION
  Report Type: Spontaneous
  Country: US (occurrence: US)
  Receive Date: 20250214
  Receipt Date: 20250214
  Transmission Date: 20250409
  Serious: No
  Sender: ABBVIE
  Company Number: US-ABBVIE-6122810

PATIENT
  Sex: Male

DRUGS (1)
  1. FETZIMA [Suspect]
     Active Substance: LEVOMILNACIPRAN HYDROCHLORIDE
     Indication: Product used for unknown indication
     Route: 048
     Dates: start: 2015, end: 202412

REACTIONS (5)
  - Asthenia [Unknown]
  - Coordination abnormal [Unknown]
  - Dizziness [Unknown]
  - Irritability [Unknown]
  - Confusional state [Unknown]
